FAERS Safety Report 19031159 (Version 1)
Quarter: 2021Q1

REPORT INFORMATION
  Report Type: Spontaneous
  Country: US (occurrence: US)
  Receive Date: 20210318
  Receipt Date: 20210318
  Transmission Date: 20210420
  Serious: Yes (Hospitalization)
  Sender: FDA-Public Use
  Company Number: None

PATIENT
  Age: 22 Year
  Sex: Male
  Weight: 79.1 kg

DRUGS (6)
  1. AZATHIOPRINE. [Concomitant]
     Active Substance: AZATHIOPRINE
  2. RENFLEXIS [Suspect]
     Active Substance: INFLIXIMAB-ABDA
  3. PROMETHAZINE [Concomitant]
     Active Substance: PROMETHAZINE HYDROCHLORIDE
  4. IMODIUM PRN [Concomitant]
  5. DICYCLOMINE [Concomitant]
     Active Substance: DICYCLOMINE HYDROCHLORIDE
  6. ONDANSETRON [Concomitant]
     Active Substance: ONDANSETRON

REACTIONS (10)
  - Ileocaecal resection [None]
  - Irritable bowel syndrome [None]
  - Urethral stent insertion [None]
  - Diarrhoea [None]
  - Abdominal pain [None]
  - Anal fistula [None]
  - Ileostomy [None]
  - Vomiting [None]
  - Nausea [None]
  - Hyponatraemia [None]

NARRATIVE: CASE EVENT DATE: 20201203
